FAERS Safety Report 24195485 (Version 2)
Quarter: 2024Q4

REPORT INFORMATION
  Report Type: Report from Study
  Country: US (occurrence: US)
  Receive Date: 20240809
  Receipt Date: 20241107
  Transmission Date: 20250114
  Serious: No
  Sender: ABBVIE
  Company Number: US-ABBVIE-5871920

PATIENT
  Age: 55 Year
  Sex: Female

DRUGS (4)
  1. BOTOX [Suspect]
     Active Substance: ONABOTULINUMTOXINA
     Indication: Migraine
     Dosage: 200 UNIT
     Route: 058
     Dates: start: 20240617, end: 20240617
  2. BOTOX [Suspect]
     Active Substance: ONABOTULINUMTOXINA
     Indication: Migraine
     Dosage: 200 UNIT
     Route: 030
     Dates: start: 2024, end: 2024
  3. AJOVY [Concomitant]
     Active Substance: FREMANEZUMAB-VFRM
     Indication: Migraine
     Route: 058
  4. RELPAX [Concomitant]
     Active Substance: ELETRIPTAN HYDROBROMIDE
     Indication: Abortion induced
     Dosage: PILL?PRN
     Route: 048

REACTIONS (3)
  - Dysphagia [Recovered/Resolved]
  - Migraine [Recovered/Resolved]
  - Neck pain [Recovered/Resolved]

NARRATIVE: CASE EVENT DATE: 20240601
